FAERS Safety Report 4898369-7 (Version None)
Quarter: 2006Q1

REPORT INFORMATION
  Report Type: 
  Country: None (occurrence: None)
  Receive Date: 20060131
  Receipt Date: 20060131
  Transmission Date: 20060701
  Serious: Yes (Hospitalization)
  Sender: FDA-Public Use
  Company Number: None

PATIENT
  Age: 63 Year
  Sex: Male

DRUGS (6)
  1. WARFARIN [Suspect]
     Indication: DEEP VEIN THROMBOSIS
     Dosage: 12.5 MG DAILY PO
     Route: 048
  2. WARFARIN [Suspect]
     Indication: PULMONARY EMBOLISM
     Dosage: 12.5 MG DAILY PO
     Route: 048
  3. NIACIN [Suspect]
     Dosage: 500 MG DAILY PO
     Route: 048
  4. METOPROLOL [Concomitant]
  5. APAP TAB [Concomitant]
  6. BENADRYL [Concomitant]

REACTIONS (2)
  - HAEMATURIA [None]
  - LIVER FUNCTION TEST ABNORMAL [None]
